FAERS Safety Report 5473948-7 (Version None)
Quarter: 2007Q4

REPORT INFORMATION
  Report Type: 
  Country: None (occurrence: None)
  Receive Date: 20071001
  Receipt Date: 20070925
  Transmission Date: 20080405
  Serious: Yes (Other)
  Sender: FDA-Public Use
  Company Number: US-PFIZER INC-2007080000

PATIENT
  Sex: Female
  Weight: 65 kg

DRUGS (4)
  1. DEPO-ESTRADIOL [Suspect]
     Indication: OESTROGEN REPLACEMENT THERAPY
     Dosage: TEXT:1CC PER MONTH
     Dates: start: 19910101, end: 20070601
  2. ESTROGEL [Suspect]
     Indication: OESTROGEN REPLACEMENT THERAPY
     Dates: start: 20070601, end: 20070701
  3. LIPITOR [Concomitant]
  4. CRESTOR [Concomitant]

REACTIONS (3)
  - DEPRESSED MOOD [None]
  - MACULAR DEGENERATION [None]
  - VISUAL DISTURBANCE [None]
